FAERS Safety Report 10351326 (Version 4)
Quarter: 2014Q3

REPORT INFORMATION
  Report Type: Report from Study
  Country: IT (occurrence: IT)
  Receive Date: 20140730
  Receipt Date: 20140924
  Transmission Date: 20150326
  Serious: Yes (Hospitalization)
  Sender: FDA-Public Use
  Company Number: IT-GLAXOSMITHKLINE-B1018975A

PATIENT
  Age: 45 Year
  Sex: Female

DRUGS (1)
  1. PAZOPANIB [Suspect]
     Active Substance: PAZOPANIB
     Indication: SARCOMA
     Dates: start: 20121213, end: 20130103

REACTIONS (1)
  - Tumour pain [Recovered/Resolved with Sequelae]

NARRATIVE: CASE EVENT DATE: 20130103
